FAERS Safety Report 22019224 (Version 2)
Quarter: 2023Q1

REPORT INFORMATION
  Report Type: Spontaneous
  Country: GB (occurrence: GB)
  Receive Date: 20230222
  Receipt Date: 20230308
  Transmission Date: 20230417
  Serious: Yes (Death, Life-Threatening, Hospitalization, Disabling, Other)
  Sender: FDA-Public Use
  Company Number: None

PATIENT
  Age: 56 Year
  Sex: Male
  Weight: 92 kg

DRUGS (77)
  1. CIPROFLOXACIN [Interacting]
     Active Substance: CIPROFLOXACIN
     Indication: Depression
     Dosage: 1000 MILLIGRAM, QD (DAILY) FILM-COATED TABLET
     Route: 048
  2. CIPROFLOXACIN [Interacting]
     Active Substance: CIPROFLOXACIN
     Indication: Rheumatoid arthritis
     Dosage: UNK (FILM-COATED TABLET)
     Route: 065
  3. CLOZAPINE [Interacting]
     Active Substance: CLOZAPINE
     Indication: Schizophrenia
     Dosage: 400 MILLIGRAM (TABLET) (CLOZARIL)
     Route: 048
     Dates: start: 20090403
  4. CLOZAPINE [Interacting]
     Active Substance: CLOZAPINE
     Indication: Schizophrenia
     Dosage: 400 MILLIGRAM (CLOZARIL)
     Route: 048
     Dates: start: 20200403
  5. CLOZAPINE [Interacting]
     Active Substance: CLOZAPINE
     Dosage: UNK (CLOZARIL)
     Route: 048
     Dates: start: 20090403
  6. CLOZAPINE [Interacting]
     Active Substance: CLOZAPINE
     Dosage: 8 MILLIGRAM (CLOZARIL)
     Route: 048
     Dates: start: 20200521, end: 202005
  7. CLOZAPINE [Interacting]
     Active Substance: CLOZAPINE
     Dosage: UNK (TABLET) (CLOZARIL)
     Route: 048
     Dates: start: 20200403
  8. CLOZAPINE [Interacting]
     Active Substance: CLOZAPINE
     Dosage: 8 MILLIGRAM, QD (TABLET) (CLOZARIL)
     Route: 048
     Dates: start: 20200521, end: 202005
  9. CLOZAPINE [Interacting]
     Active Substance: CLOZAPINE
     Dosage: 400 MILLIGRAM, (TABLET) (CLOZARIL)
     Route: 048
     Dates: start: 20090403
  10. CLOZAPINE [Interacting]
     Active Substance: CLOZAPINE
     Dosage: 8 MILLIGRAM, QD (TABLET) (CLOZARIL)
     Route: 048
     Dates: start: 202005
  11. CLOZAPINE [Interacting]
     Active Substance: CLOZAPINE
     Dosage: 8 MILLIGRAM, QD (TABLET)  (CLOZARIL)
     Route: 048
     Dates: start: 202005
  12. CLOZAPINE [Interacting]
     Active Substance: CLOZAPINE
     Dosage: 400 MILLIGRAM, (TABLET) (CLOZARIL)
     Route: 048
     Dates: start: 20200403
  13. CLOZAPINE [Interacting]
     Active Substance: CLOZAPINE
     Dosage: 40 MILLIGRAM, QD (TABLET) (CLOZARIL)
     Route: 048
  14. CLOZAPINE [Interacting]
     Active Substance: CLOZAPINE
     Dosage: 20 MILLIGRAM, BID (TABLET), 40 MG(1 DAY) (CLOZARIL)
     Route: 048
  15. CLOZAPINE [Interacting]
     Active Substance: CLOZAPINE
     Dosage: 20 MILLIGRAM, BID (TABLET), (40 MG PER DAY) (CLOZARIL)
     Route: 048
  16. OMEPRAZOLE [Interacting]
     Active Substance: OMEPRAZOLE
     Indication: Abdominal discomfort
     Dosage: 12 MILLIGRAM, BID (24MG, 1 DAY)
     Route: 048
  17. OMEPRAZOLE [Interacting]
     Active Substance: OMEPRAZOLE
     Indication: Gastrooesophageal reflux disease
     Dosage: 20 MILLIGRAM, BID (40 MG, QD)
     Route: 048
  18. OMEPRAZOLE [Interacting]
     Active Substance: OMEPRAZOLE
     Dosage: 20 MILLIGRAM, BID (Q12H)
     Route: 048
  19. OMEPRAZOLE [Interacting]
     Active Substance: OMEPRAZOLE
     Dosage: 20 MILLIGRAM, BID (40 MG PER DAY)
     Route: 048
  20. OMEPRAZOLE [Interacting]
     Active Substance: OMEPRAZOLE
     Dosage: 20 MILLIGRAM, BID (40 MG PER DAY)
     Route: 048
  21. OMEPRAZOLE [Interacting]
     Active Substance: OMEPRAZOLE
     Dosage: 400 MICROGRAM
     Route: 065
  22. OMEPRAZOLE [Interacting]
     Active Substance: OMEPRAZOLE
     Dosage: 40 MILLIGRAM, QD
     Route: 065
  23. OMEPRAZOLE [Interacting]
     Active Substance: OMEPRAZOLE
     Dosage: 400 MILLIGRAM
     Route: 048
  24. OMEPRAZOLE [Interacting]
     Active Substance: OMEPRAZOLE
     Dosage: 400 MICROGRAM
     Route: 065
  25. OMEPRAZOLE [Interacting]
     Active Substance: OMEPRAZOLE
     Dosage: 24 MILLIGRAM
     Route: 003
  26. SOLIFENACIN [Interacting]
     Active Substance: SOLIFENACIN
     Indication: Product used for unknown indication
     Dosage: 82 DOSAGE FORM (FILM-COATED TABLET)
     Route: 048
  27. TAMSULOSIN HYDROCHLORIDE [Interacting]
     Active Substance: TAMSULOSIN HYDROCHLORIDE
     Indication: Product used for unknown indication
     Dosage: 400 MICROGRAM
     Route: 065
  28. VENLAFAXINE [Interacting]
     Active Substance: VENLAFAXINE HYDROCHLORIDE
     Indication: Depression
     Dosage: 225 MILLIGRAM, QD (VENSIR XL PROLONGED RELEASE)
     Route: 065
  29. VENLAFAXINE [Interacting]
     Active Substance: VENLAFAXINE HYDROCHLORIDE
     Indication: Rheumatoid arthritis
     Dosage: UNK (VENSIR XL PROLONGED RELEASE)
     Route: 065
  30. AMINOPHYLLINE [Interacting]
     Active Substance: AMINOPHYLLINE
     Indication: Product used for unknown indication
     Dosage: 400 MILLIGRAM, QD
     Route: 065
     Dates: start: 20100917
  31. CARBAMAZEPINE [Interacting]
     Active Substance: CARBAMAZEPINE
     Indication: Product used for unknown indication
     Dosage: 750 MILLIGRAM, QD (1 DAY)
     Route: 048
  32. CARBAMAZEPINE [Interacting]
     Active Substance: CARBAMAZEPINE
     Dosage: 750 MILLIGRAM, QD (1 DAY)
     Route: 048
  33. CARBOCYSTEINE [Interacting]
     Active Substance: CARBOCYSTEINE
     Indication: Rheumatoid arthritis
     Dosage: 750 MILLIGRAM, OD (ONCE A DAY)
     Route: 065
  34. CARBOCYSTEINE [Interacting]
     Active Substance: CARBOCYSTEINE
     Dosage: 750 MILLIGRAM, OD (ONCE A DAY)
     Route: 065
     Dates: start: 20100917
  35. MODERNA COVID-19 VACCINE [Interacting]
     Active Substance: ELASOMERAN
     Indication: COVID-19 prophylaxis
     Dosage: 1 DOSAGE FORM
     Route: 030
     Dates: start: 20211204, end: 20211204
  36. DEXAMETHASONE [Interacting]
     Active Substance: DEXAMETHASONE
     Indication: Radiotherapy to pharynx
     Dosage: 8 MILLIGRAM, QD
     Route: 048
     Dates: start: 20200515, end: 202005
  37. DEXAMETHASONE [Interacting]
     Active Substance: DEXAMETHASONE
     Indication: Radiotherapy
     Dosage: 10 MILLIGRAM (ORAL SOLUTION)
     Route: 048
  38. DEXAMETHASONE [Interacting]
     Active Substance: DEXAMETHASONE
     Dosage: UNK
     Route: 065
     Dates: start: 202005
  39. DEXAMETHASONE [Interacting]
     Active Substance: DEXAMETHASONE
     Dosage: 2 MILLIGRAM, QD (1 DAY)
     Route: 048
  40. DEXAMETHASONE [Interacting]
     Active Substance: DEXAMETHASONE
     Dosage: 2 MILLIGRAM, QD (ORAL SOLUTION)
     Route: 048
     Dates: start: 20200521, end: 20200528
  41. DEXAMETHASONE [Interacting]
     Active Substance: DEXAMETHASONE
     Dosage: 8 MILLIGRAM, QD (ORAL SOLUTION)
     Route: 048
     Dates: start: 20200528
  42. DEXAMETHASONE [Interacting]
     Active Substance: DEXAMETHASONE
     Dosage: 8 MILLIGRAM, QD
     Route: 048
     Dates: start: 202005, end: 20200528
  43. DITIOCARB [Interacting]
     Active Substance: DITIOCARB
     Indication: Abdominal discomfort
     Dosage: 750 MILLIGRAM
     Route: 065
  44. DOMPERIDONE [Interacting]
     Active Substance: DOMPERIDONE
     Indication: Product used for unknown indication
     Dosage: UNK (FILM-COATED TABLET)
     Route: 048
  45. ENBREL [Interacting]
     Active Substance: ETANERCEPT
     Indication: Rheumatoid arthritis
     Dosage: 50 MILLIGRAM, QW (1 WEEK) SOLUTION FOR INJECTION
     Route: 042
     Dates: start: 20100917
  46. FOLIC ACID [Interacting]
     Active Substance: FOLIC ACID
     Indication: Product used for unknown indication
     Dosage: 5 MILLIGRAM, QD (1 DAY)
     Route: 048
  47. FOLIC ACID [Interacting]
     Active Substance: FOLIC ACID
     Dosage: 5 MILLIGRAM
     Route: 048
  48. FOLIC ACID [Interacting]
     Active Substance: FOLIC ACID
     Dosage: 5 MILLIGRAM
     Route: 048
  49. GUANIDINE [Interacting]
     Active Substance: GUANIDINE
     Indication: Abdominal discomfort
     Dosage: 750 MILLIGRAM, OD (1 DAY)
     Route: 048
  50. GUANIDINE [Interacting]
     Active Substance: GUANIDINE
     Indication: Depression
  51. IRBESARTAN [Interacting]
     Active Substance: IRBESARTAN
     Indication: Abdominal discomfort
     Dosage: 150 MILLIGRAM, QD
     Route: 048
     Dates: start: 20100912
  52. IRBESARTAN [Interacting]
     Active Substance: IRBESARTAN
     Dosage: 150 MILLIGRAM, QD
     Route: 048
     Dates: start: 20100917
  53. METHOTREXATE SODIUM [Interacting]
     Active Substance: METHOTREXATE SODIUM
     Indication: Rheumatoid arthritis
     Dosage: 17.5 MILLIGRAM (1 WEEK)
     Route: 065
     Dates: start: 20100917
  54. METHOTREXATE SODIUM [Interacting]
     Active Substance: METHOTREXATE SODIUM
     Dosage: 18 MILLIGRAM, QW (1 WEEK) (AT 17.5, WEEKLY)
     Route: 065
     Dates: start: 20100917
  55. PHYLLOCONTIN [Interacting]
     Active Substance: AMINOPHYLLINE
     Indication: Product used for unknown indication
     Dosage: 400 MILLIGRAM, QD (TABLET) DAILY
     Route: 065
     Dates: start: 20100917
  56. SIMVASTATIN [Interacting]
     Active Substance: SIMVASTATIN
     Indication: Product used for unknown indication
     Dosage: 20 MILLIGRAM
     Route: 048
  57. SIMVASTATIN [Interacting]
     Active Substance: SIMVASTATIN
     Dosage: UNK
     Route: 048
  58. SULFAGUANIDINE [Interacting]
     Active Substance: SULFAGUANIDINE
     Indication: Product used for unknown indication
     Dosage: 750 MILLIGRAM
     Route: 048
  59. TRIMETHOPRIM [Interacting]
     Active Substance: TRIMETHOPRIM
     Indication: Urinary tract infection
     Dosage: 200 MILLIGRAM, QD (1 DAY)
     Route: 048
     Dates: start: 20190118, end: 20190120
  60. ZINC [Interacting]
     Active Substance: ZINC
     Indication: Product used for unknown indication
     Dosage: 750 MILLIGRAM, OD (ONCE A DAY)
     Route: 065
  61. DITIOCARB ZINC [Interacting]
     Active Substance: DITIOCARB ZINC
     Indication: Abdominal discomfort
     Dosage: 750 MILLIGRAM, QD
     Route: 065
  62. BECLOMETHASONE DIPROPIONATE [Interacting]
     Active Substance: BECLOMETHASONE DIPROPIONATE
     Indication: Product used for unknown indication
     Dosage: 146 DOSAGE FORM
     Route: 065
     Dates: start: 20190102
  63. BENDROFLUMETHIAZIDE [Interacting]
     Active Substance: BENDROFLUMETHIAZIDE
     Indication: Pituitary tumour
     Dosage: UNK
     Route: 065
  64. BENDROFLUMETHIAZIDE [Interacting]
     Active Substance: BENDROFLUMETHIAZIDE
     Indication: Depression
     Dosage: UNK
     Route: 065
  65. BENDROFLUMETHIAZIDE [Interacting]
     Active Substance: BENDROFLUMETHIAZIDE
     Dosage: UNK
     Route: 065
  66. CABERGOLINE [Interacting]
     Active Substance: CABERGOLINE
     Indication: Empty sella syndrome
     Dosage: UNK
     Route: 065
  67. CABERGOLINE [Interacting]
     Active Substance: CABERGOLINE
     Indication: Pituitary tumour
     Dosage: UNK
     Route: 065
  68. CHARCOAL ACTIVATED [Interacting]
     Active Substance: ACTIVATED CHARCOAL
     Indication: Product used for unknown indication
     Dosage: 750 MILLIGRAM
     Route: 065
  69. CHARCOAL ACTIVATED [Interacting]
     Active Substance: ACTIVATED CHARCOAL
     Dosage: 750 MILLIGRAM
     Route: 065
  70. CETIRIZINE [Interacting]
     Active Substance: CETIRIZINE HYDROCHLORIDE
     Indication: Abdominal discomfort
     Dosage: UNK
     Route: 065
  71. CETIRIZINE [Interacting]
     Active Substance: CETIRIZINE HYDROCHLORIDE
     Dosage: UNK
     Route: 065
  72. DULOXETINE [Interacting]
     Active Substance: DULOXETINE
     Indication: Product used for unknown indication
     Dosage: UNK
     Route: 065
  73. EZETIMIBE [Interacting]
     Active Substance: EZETIMIBE
     Indication: Product used for unknown indication
     Dosage: UNK
     Route: 065
  74. LEVOTHYROXINE [Interacting]
     Active Substance: LEVOTHYROXINE
     Indication: Abdominal discomfort
     Dosage: UNK
     Route: 065
  75. LEVOTHYROXINE [Interacting]
     Active Substance: LEVOTHYROXINE
     Dosage: UNK
     Route: 065
  76. ORUVAIL [Interacting]
     Active Substance: KETOPROFEN
     Indication: Empty sella syndrome
     Dosage: UNK
     Route: 065
  77. UNSPECIFIED INGREDIENT [Interacting]
     Active Substance: UNSPECIFIED INGREDIENT
     Indication: Product used for unknown indication
     Dosage: 750 MILLIGRAM
     Route: 065

REACTIONS (36)
  - Abdominal discomfort [Fatal]
  - Abdominal pain [Fatal]
  - Gastrointestinal pain [Fatal]
  - Contusion [Fatal]
  - Lower respiratory tract infection [Fatal]
  - Inflammation [Fatal]
  - Drug interaction [Fatal]
  - Diarrhoea [Fatal]
  - Abdominal pain upper [Fatal]
  - Feeling abnormal [Fatal]
  - Dementia [Fatal]
  - Food poisoning [Fatal]
  - Rash [Fatal]
  - Genital ulceration [Fatal]
  - Malaise [Fatal]
  - Irritable bowel syndrome [Fatal]
  - Arthropathy [Fatal]
  - Product dose omission issue [Fatal]
  - Intentional product misuse [Fatal]
  - Mucosal inflammation [Fatal]
  - Nightmare [Fatal]
  - Off label use [Fatal]
  - Overdose [Fatal]
  - Pulmonary pain [Fatal]
  - Schizophrenia [Fatal]
  - Lung neoplasm malignant [Fatal]
  - COVID-19 [Fatal]
  - Condition aggravated [Fatal]
  - Blood potassium decreased [Fatal]
  - Radiation inflammation [Fatal]
  - Illness [Fatal]
  - Oral pain [Fatal]
  - Peripheral swelling [Fatal]
  - Genital pain [Fatal]
  - Vomiting [Fatal]
  - Drug abuse [Fatal]

NARRATIVE: CASE EVENT DATE: 20190121
